FAERS Safety Report 10497767 (Version 2)
Quarter: 2014Q4

REPORT INFORMATION
  Report Type: Spontaneous
  Country: US (occurrence: US)
  Receive Date: 20141006
  Receipt Date: 20141015
  Transmission Date: 20150528
  Serious: Yes (Other)
  Sender: FDA-Public Use
  Company Number: US-PFIZER INC-2014270867

PATIENT
  Age: 63 Year
  Sex: Male
  Weight: 68.03 kg

DRUGS (2)
  1. VIAGRA [Suspect]
     Active Substance: SILDENAFIL CITRATE
     Indication: ERECTILE DYSFUNCTION
     Dosage: 100 MG, AS NEEDED
     Route: 048
     Dates: start: 2013
  2. HYDROCHLOROTHIAZIDE - LISINOPRIL [Concomitant]
     Indication: HYPERTENSION
     Dosage: 12.5/20, 1X/DAY

REACTIONS (2)
  - Aggression [Unknown]
  - Abnormal behaviour [Unknown]
